FAERS Safety Report 7512324-X (Version None)
Quarter: 2011Q2

REPORT INFORMATION
  Report Type: 
  Country: None (occurrence: None)
  Receive Date: 20110531
  Receipt Date: 20110517
  Transmission Date: 20111010
  Serious: Yes (Other)
  Sender: FDA-Public Use
  Company Number: PHHY2011US11703

PATIENT
  Sex: Female

DRUGS (6)
  1. GLEEVEC [Suspect]
     Route: 048
     Dates: start: 20101201
  2. GLEEVEC [Suspect]
     Dosage: 300 MG, QD
     Route: 048
  3. GLEEVEC [Suspect]
     Dosage: 400 MG, QD
     Route: 048
     Dates: start: 20100929
  4. GLEEVEC [Suspect]
     Route: 048
     Dates: start: 20070101
  5. GLEEVEC [Suspect]
     Indication: NEOPLASM MALIGNANT
     Route: 048
     Dates: start: 20030501, end: 20060101
  6. GLEEVEC [Suspect]
     Route: 048
     Dates: start: 20090101

REACTIONS (13)
  - LIP OEDEMA [None]
  - NAUSEA [None]
  - LACRIMATION INCREASED [None]
  - ABDOMINAL PAIN [None]
  - JEJUNAL STENOSIS [None]
  - DIARRHOEA [None]
  - PERIORBITAL OEDEMA [None]
  - LIVER FUNCTION TEST ABNORMAL [None]
  - HEPATIC NEOPLASM [None]
  - DEHYDRATION [None]
  - VISION BLURRED [None]
  - WEIGHT INCREASED [None]
  - GASTROINTESTINAL STROMAL TUMOUR [None]
